FAERS Safety Report 9132956 (Version 2)
Quarter: 2013Q1

REPORT INFORMATION
  Report Type: Spontaneous
  Country: US (occurrence: US)
  Receive Date: 20130128
  Receipt Date: 20130306
  Transmission Date: 20140127
  Serious: No
  Sender: FDA-Public Use
  Company Number: US-BAYER-2013-010494

PATIENT
  Sex: Female

DRUGS (3)
  1. CLIMARA [Suspect]
     Dosage: 1 PATCH OW
     Route: 062
  2. CLIMARA [Suspect]
     Dosage: 0.050 MG, UNK
     Route: 062
  3. CLIMARA [Suspect]
     Dosage: 0.025 MG, UNK

REACTIONS (5)
  - Night sweats [None]
  - Product adhesion issue [Not Recovered/Not Resolved]
  - Device malfunction [None]
  - Application site erythema [Not Recovered/Not Resolved]
  - Application site pruritus [Not Recovered/Not Resolved]
